FAERS Safety Report 9068890 (Version 1)
Quarter: 2013Q1

REPORT INFORMATION
  Report Type: Spontaneous
  Country: US (occurrence: None)
  Receive Date: 20130212
  Receipt Date: 20130212
  Transmission Date: 20140127
  Serious: Yes (Other)
  Sender: FDA-Public Use
  Company Number: None

PATIENT
  Age: 79 Year
  Sex: Female

DRUGS (7)
  1. REVLIMID [Suspect]
     Indication: PLASMA CELL MYELOMA
     Dosage: REVLIMID 10 MG DAILY X21D/28D ORALLY
     Route: 048
     Dates: start: 201301
  2. FUROSEMIDE [Concomitant]
  3. ALLOPURINOL [Concomitant]
  4. ATENOLOL [Concomitant]
  5. OMEPRAZOLE [Concomitant]
  6. SIMVASTATIN [Concomitant]
  7. LEVOTHYROXINE [Concomitant]

REACTIONS (3)
  - Oedema peripheral [None]
  - Deep vein thrombosis [None]
  - Neutropenia [None]
